FAERS Safety Report 6295568-7 (Version None)
Quarter: 2009Q3

REPORT INFORMATION
  Report Type: 
  Country: None (occurrence: None)
  Receive Date: 20090731
  Receipt Date: 20090717
  Transmission Date: 20100115
  Serious: Yes (Hospitalization, Other)
  Sender: FDA-Public Use
  Company Number: 233340K08USA

PATIENT
  Age: 59 Year
  Sex: Male

DRUGS (1)
  1. REBIF [Suspect]
     Indication: MULTIPLE SCLEROSIS
     Dosage: 44 MCG, 3 IN 1 WEEKS, SUBCUTANEOUS
     Route: 058
     Dates: start: 20030416

REACTIONS (6)
  - ALCOHOL USE [None]
  - EJECTION FRACTION DECREASED [None]
  - FALL [None]
  - OSTEOARTHRITIS [None]
  - PATELLA FRACTURE [None]
  - SPINAL FRACTURE [None]
